FAERS Safety Report 7375067-1 (Version None)
Quarter: 2011Q1

REPORT INFORMATION
  Report Type: 
  Country: None (occurrence: None)
  Receive Date: 20110325
  Receipt Date: 20110322
  Transmission Date: 20110831
  Serious: Yes (Life-Threatening)
  Sender: FDA-Public Use
  Company Number: PHHY2011TH23349

PATIENT
  Age: 59 Year
  Sex: Male

DRUGS (1)
  1. ACLASTA [Suspect]
     Dosage: 5 MG
     Route: 042

REACTIONS (4)
  - ELECTROCARDIOGRAM ABNORMAL [None]
  - BLOOD POTASSIUM DECREASED [None]
  - BRUGADA SYNDROME [None]
  - SYNCOPE [None]
